FAERS Safety Report 5611552-8 (Version None)
Quarter: 2008Q1

REPORT INFORMATION
  Report Type: 
  Country: None (occurrence: None)
  Receive Date: 20080201
  Receipt Date: 20080109
  Transmission Date: 20080703
  Serious: No
  Sender: FDA-Public Use
  Company Number: US-BOEHRINGER INGELHEIM GMBH, GERMANY-2008-BP-00471BP

PATIENT
  Sex: Female

DRUGS (5)
  1. SPIRIVA [Suspect]
     Indication: CHRONIC OBSTRUCTIVE PULMONARY DISEASE
     Route: 055
     Dates: start: 20030101
  2. PULMICORT NEBULIZER [Concomitant]
  3. SINGULAIR [Concomitant]
  4. DUONEB [Concomitant]
  5. BP PILL [Concomitant]

REACTIONS (3)
  - POLLAKIURIA [None]
  - SENSATION OF PRESSURE [None]
  - URINARY TRACT INFECTION [None]
